FAERS Safety Report 22742854 (Version 3)
Quarter: 2024Q2

REPORT INFORMATION
  Report Type: Report from Study
  Country: CA (occurrence: CA)
  Receive Date: 20230724
  Receipt Date: 20240405
  Transmission Date: 20240715
  Serious: Yes (Other)
  Sender: FDA-Public Use
  Company Number: CA-002147023-NVSC2023CA117175

PATIENT
  Age: 79 Year
  Sex: Female

DRUGS (4)
  1. GLIVEC [Suspect]
     Active Substance: IMATINIB MESYLATE
     Indication: Chronic myeloid leukaemia
     Dosage: UNK
     Route: 048
     Dates: start: 201811, end: 201901
  2. SCEMBLIX [Suspect]
     Active Substance: ASCIMINIB HYDROCHLORIDE
     Indication: Chronic myeloid leukaemia
     Dosage: 40 MG, QD (PO X 1 YEAR)
     Route: 048
     Dates: start: 20230601
  3. TASIGNA [Suspect]
     Active Substance: NILOTINIB
     Indication: Product used for unknown indication
     Dosage: 400 MG, QD
     Route: 065
     Dates: start: 20231228, end: 20240125
  4. DASATINIB [Suspect]
     Active Substance: DASATINIB
     Indication: Product used for unknown indication
     Dosage: UNK
     Route: 065
     Dates: start: 201902, end: 202305

REACTIONS (10)
  - Cystoid macular oedema [Unknown]
  - Chronic myeloid leukaemia [Unknown]
  - Cerebrovascular accident [Unknown]
  - Disease recurrence [Unknown]
  - Ocular toxicity [Unknown]
  - Fatigue [Unknown]
  - Pleural effusion [Unknown]
  - Decreased appetite [Unknown]
  - Mental fatigue [Unknown]
  - Drug intolerance [Unknown]
